FAERS Safety Report 5396661-3 (Version None)
Quarter: 2007Q3

REPORT INFORMATION
  Report Type: 
  Country: None (occurrence: None)
  Receive Date: 20070725
  Receipt Date: 20070719
  Transmission Date: 20080115
  Serious: Yes (Hospitalization)
  Sender: FDA-Public Use
  Company Number: B0479774A

PATIENT
  Age: 74 Year
  Sex: Male

DRUGS (13)
  1. ARIXTRA [Suspect]
     Dosage: 2.5MG PER DAY
     Route: 058
     Dates: start: 20070418, end: 20070427
  2. ACUPAN [Concomitant]
     Dates: start: 20070419, end: 20070428
  3. BURINEX [Concomitant]
     Dates: start: 20070422, end: 20070428
  4. HYDROCORTISONE [Concomitant]
     Dosage: 100MG THREE TIMES PER DAY
     Route: 042
     Dates: start: 20070420, end: 20070506
  5. CLAFORAN [Concomitant]
     Dosage: 2G THREE TIMES PER DAY
     Route: 042
     Dates: start: 20070419, end: 20070504
  6. CIFLOX [Concomitant]
     Route: 042
     Dates: start: 20070419, end: 20070504
  7. PERFALGAN [Concomitant]
     Dosage: 1G THREE TIMES PER DAY
     Dates: start: 20070419
  8. NEXIUM [Concomitant]
     Dates: start: 20070420
  9. LEVOTHYROXINE SODIUM [Concomitant]
     Route: 048
  10. TERCIAN [Concomitant]
     Dates: start: 20070425, end: 20070428
  11. FUROSEMIDE [Concomitant]
  12. INSULINE [Concomitant]
     Dates: start: 20070421, end: 20070504
  13. DOBUTREX [Concomitant]
     Dates: start: 20070409, end: 20070505

REACTIONS (3)
  - HAEMORRHAGIC ANAEMIA [None]
  - INCISION SITE HAEMATOMA [None]
  - RENAL FAILURE [None]
